FAERS Safety Report 5174607-0 (Version None)
Quarter: 2006Q4

REPORT INFORMATION
  Report Type: 
  Country: None (occurrence: None)
  Receive Date: 20061206
  Receipt Date: 20061124
  Transmission Date: 20070319
  Serious: Yes (Hospitalization)
  Sender: FDA-Public Use
  Company Number: 02100-JPN-06-0557

PATIENT
  Sex: Female

DRUGS (3)
  1. CILOSTAZOL [Suspect]
     Dosage: 200 MG ORAL
     Route: 048
  2. AMLODIPINE BESYLATE [Concomitant]
  3. ASPIRIN [Concomitant]

REACTIONS (1)
  - RASH MACULO-PAPULAR [None]
